FAERS Safety Report 21942093 (Version 1)
Quarter: 2023Q1

REPORT INFORMATION
  Report Type: Report from Study
  Country: US (occurrence: US)
  Receive Date: 20230202
  Receipt Date: 20230202
  Transmission Date: 20230417
  Serious: No
  Sender: FDA-Public Use
  Company Number: US-EXELIXIS-CABO-22056514

PATIENT
  Age: 73 Year
  Sex: Male

DRUGS (8)
  1. CABOMETYX [Suspect]
     Active Substance: CABOZANTINIB S-MALATE
     Indication: Renal cancer
     Dosage: 40 MG, QD
     Route: 048
     Dates: start: 20220412
  2. ATENOLOL [Concomitant]
     Active Substance: ATENOLOL
  3. FAMOTIDINE [Concomitant]
     Active Substance: FAMOTIDINE
  4. LISINOPRIL [Concomitant]
     Active Substance: LISINOPRIL
  5. NADOLOL [Concomitant]
     Active Substance: NADOLOL
  6. OXYCODONE [Concomitant]
     Active Substance: OXYCODONE
  7. QUINAPRIL [Concomitant]
     Active Substance: QUINAPRIL
  8. VITAMIN D3 [Concomitant]
     Active Substance: CHOLECALCIFEROL

REACTIONS (3)
  - Blister [Unknown]
  - Nausea [Unknown]
  - Diarrhoea [Unknown]

NARRATIVE: CASE EVENT DATE: 20220813
